FAERS Safety Report 7137918-5 (Version None)
Quarter: 2010Q4

REPORT INFORMATION
  Report Type: 
  Country: None (occurrence: None)
  Receive Date: 20101103
  Receipt Date: 20100701
  Transmission Date: 20110411
  Serious: Yes (Other)
  Sender: FDA-Public Use
  Company Number: US-WYE-H15980810

PATIENT
  Age: 44 Year
  Sex: Female
  Weight: 62.65 kg

DRUGS (5)
  1. EFFEXOR XR [Suspect]
     Indication: ANXIETY
     Dosage: 37.5 MG 1X PER 1 DAY
  2. EFFEXOR XR [Suspect]
     Indication: DEPRESSION
     Dosage: 37.5 MG 1X PER 1 DAY
  3. PAXIL [Suspect]
  4. XANAX [Concomitant]
  5. SYNTHROID [Concomitant]

REACTIONS (2)
  - DIZZINESS [None]
  - FEELING ABNORMAL [None]
